FAERS Safety Report 11749786 (Version 1)
Quarter: 2015Q4

REPORT INFORMATION
  Report Type: Spontaneous
  Country: US (occurrence: None)
  Receive Date: 20151117
  Receipt Date: 20151117
  Transmission Date: 20160304
  Serious: Yes (Other)
  Sender: FDA-Public Use
  Company Number: None

PATIENT
  Age: 44 Year
  Sex: Female
  Weight: 74.39 kg

DRUGS (6)
  1. ZZZ SLEEP [Suspect]
     Active Substance: DIPHENHYDRAMINE HYDROCHLORIDE
     Indication: MULTIPLE ALLERGIES
     Route: 048
  2. VITAMIN D [Concomitant]
     Active Substance: CHOLECALCIFEROL
  3. MG+ [Concomitant]
  4. (SPIRUTEIN) [Concomitant]
  5. MVI [Concomitant]
     Active Substance: VITAMINS
  6. PROBIOTIC [Concomitant]
     Active Substance: PROBIOTICS NOS

REACTIONS (4)
  - Arrhythmia [None]
  - Impaired driving ability [None]
  - Syncope [None]
  - Long QT syndrome [None]

NARRATIVE: CASE EVENT DATE: 20151027
